FAERS Safety Report 14477701 (Version 1)
Quarter: 2018Q1

REPORT INFORMATION
  Report Type: Report from Study
  Country: US (occurrence: US)
  Receive Date: 20180201
  Receipt Date: 20180201
  Transmission Date: 20180509
  Serious: No
  Sender: FDA-Public Use
  Company Number: US-EXELIXIS-CABO-17009460

PATIENT
  Sex: Female

DRUGS (18)
  1. MULTIVITAMIN [Concomitant]
     Active Substance: VITAMINS
  2. BUPROPION. [Concomitant]
     Active Substance: BUPROPION
  3. RITALIN [Concomitant]
     Active Substance: METHYLPHENIDATE HYDROCHLORIDE
  4. BUPIVACAINE. [Concomitant]
     Active Substance: BUPIVACAINE
  5. MORPHINE [Concomitant]
     Active Substance: MORPHINE
  6. COMETRIQ [Suspect]
     Active Substance: CABOZANTINIB S-MALATE
     Dosage: 60 MG, QD
     Route: 048
  7. CARISOPRODOL. [Concomitant]
     Active Substance: CARISOPRODOL
  8. VITAMIN B1 [Concomitant]
     Active Substance: THIAMINE HYDROCHLORIDE
  9. KETAMINE [Concomitant]
     Active Substance: KETAMINE
  10. ONDANSETRON [Concomitant]
     Active Substance: ONDANSETRON
  11. VITAMIN D [Concomitant]
     Active Substance: CHOLECALCIFEROL
  12. GABAPENTIN. [Concomitant]
     Active Substance: GABAPENTIN
  13. ZOLPIDEM [Concomitant]
     Active Substance: ZOLPIDEM\ZOLPIDEM TARTRATE
  14. LEVOTHYROXINE. [Concomitant]
     Active Substance: LEVOTHYROXINE
  15. HCL PLUS [Concomitant]
  16. COMETRIQ [Suspect]
     Active Substance: CABOZANTINIB S-MALATE
     Indication: THYROID CANCER
     Dosage: 100 MG, QD
     Route: 048
     Dates: start: 20130207, end: 20130330
  17. OPIUM. [Concomitant]
     Active Substance: OPIUM
  18. LOMOTIL [Concomitant]
     Active Substance: ATROPINE SULFATE\DIPHENOXYLATE HYDROCHLORIDE

REACTIONS (2)
  - Malaise [Unknown]
  - Pharyngitis streptococcal [Unknown]
